FAERS Safety Report 21942200 (Version 1)
Quarter: 2023Q1

REPORT INFORMATION
  Report Type: Report from Study
  Country: US (occurrence: US)
  Receive Date: 20230202
  Receipt Date: 20230202
  Transmission Date: 20230417
  Serious: No
  Sender: FDA-Public Use
  Company Number: US-EXELIXIS-CABO-22056915

PATIENT
  Age: 61 Year
  Sex: Male

DRUGS (2)
  1. CABOMETYX [Suspect]
     Active Substance: CABOZANTINIB S-MALATE
     Indication: Renal cancer
     Dosage: 40 MG, DAILY (TAKE 1 TABLET BY MOUTH DAILY ON MON-WED, HOLD ON THURSDAY, TAKE 1 TABLET DAILY ON FRID
     Route: 048
     Dates: start: 20211012, end: 20221109
  2. CABOMETYX [Suspect]
     Active Substance: CABOZANTINIB S-MALATE
     Dosage: 40 MG, TAKE 1 TABLET BY MOUTH ONCE DAILY ON MONDAY, TUESDAY, AND WEDNESDAY, OFF ON THURSDAY AND FRID
     Route: 048

REACTIONS (13)
  - Oropharyngeal pain [Unknown]
  - Abdominal discomfort [Unknown]
  - Tinea cruris [Recovering/Resolving]
  - Limb discomfort [Not Recovered/Not Resolved]
  - Blood glucose increased [Unknown]
  - Blood pressure increased [Not Recovered/Not Resolved]
  - Stomatitis [Not Recovered/Not Resolved]
  - Diarrhoea [Not Recovered/Not Resolved]
  - Pain in extremity [Not Recovered/Not Resolved]
  - Laboratory test abnormal [Unknown]
  - Influenza like illness [Not Recovered/Not Resolved]
  - Inappropriate schedule of product administration [Unknown]
  - Product prescribing issue [Unknown]

NARRATIVE: CASE EVENT DATE: 20211012
